FAERS Safety Report 19570890 (Version 2)
Quarter: 2021Q3

REPORT INFORMATION
  Report Type: Spontaneous
  Country: IT (occurrence: IT)
  Receive Date: 20210716
  Receipt Date: 20210805
  Transmission Date: 20211014
  Serious: Yes (Other)
  Sender: FDA-Public Use
  Company Number: IT-PFIZER INC-2021840081

PATIENT
  Age: 55 Year
  Sex: Male

DRUGS (3)
  1. CYTARABINE. [Suspect]
     Active Substance: CYTARABINE
     Dosage: 200 MG/M2, CYCLIC (D1?7), TOTAL DOSAGE: 390 MGX7
     Dates: start: 20200117
  2. MYLOTARG [Suspect]
     Active Substance: GEMTUZUMAB OZOGAMICIN
     Indication: ACUTE MONOCYTIC LEUKAEMIA
     Dosage: 3 MG/M2, CYCLIC (D1, 4, 7), TOTAL DOSAGE: 4.97 MGX3
     Dates: start: 20200117
  3. DAUNOBLASTINA [Suspect]
     Active Substance: DAUNORUBICIN
     Dosage: 60 MG/M2, CYCLIC (D1, 2, 3) TOTAL DOSAGE: 117 MGX3
     Dates: start: 20200117

REACTIONS (7)
  - White blood cell count decreased [Unknown]
  - Haemoglobin decreased [Unknown]
  - Neutrophil count decreased [Unknown]
  - Neutropenia [Unknown]
  - Thrombocytopenia [Unknown]
  - Graft versus host disease in skin [Recovered/Resolved]
  - Anaemia [Unknown]

NARRATIVE: CASE EVENT DATE: 20200224
